FAERS Safety Report 25886729 (Version 1)
Quarter: 2025Q4

REPORT INFORMATION
  Report Type: Spontaneous
  Country: US (occurrence: None)
  Receive Date: 20251005
  Receipt Date: 20251005
  Transmission Date: 20260117
  Serious: Yes (Other)
  Sender: FDA-CTU
  Company Number: None

PATIENT
  Age: 41 Year
  Sex: Female
  Weight: 121.5 kg

DRUGS (2)
  1. SYNTHROID [Suspect]
     Active Substance: LEVOTHYROXINE SODIUM
     Indication: Hypothyroidism
     Dates: start: 20010601, end: 20140110
  2. ARMOUR THYROID [Concomitant]
     Active Substance: THYROID, PORCINE

REACTIONS (11)
  - Somnolence [None]
  - Bone pain [None]
  - Arthralgia [None]
  - Near death experience [None]
  - Asthenia [None]
  - Loss of personal independence in daily activities [None]
  - Fatigue [None]
  - Depression [None]
  - Pain [None]
  - Loss of employment [None]
  - Drug ineffective [None]

NARRATIVE: CASE EVENT DATE: 20140110
